FAERS Safety Report 13592604 (Version 1)
Quarter: 2017Q2

REPORT INFORMATION
  Report Type: Spontaneous
  Country: US (occurrence: US)
  Receive Date: 20170530
  Receipt Date: 20170530
  Transmission Date: 20170830
  Serious: No
  Sender: FDA-Public Use
  Company Number: US-BAXTER-2017BAX021939

PATIENT
  Sex: Male
  Weight: 70.37 kg

DRUGS (2)
  1. FLUCONAZOLE INJECTION, USP [Suspect]
     Active Substance: FLUCONAZOLE
     Indication: PRODUCT USED FOR UNKNOWN INDICATION
     Route: 065
  2. XALKORI [Suspect]
     Active Substance: CRIZOTINIB
     Indication: ADENOID CYSTIC CARCINOMA
     Dosage: RECEIVED BY MOUTH, HAD BEEN ON THE PRODUCT FOR 2 WEEKS AND A DAY
     Route: 048

REACTIONS (10)
  - Vitreous floaters [Not Recovered/Not Resolved]
  - Hypophagia [Not Recovered/Not Resolved]
  - Weight decreased [Not Recovered/Not Resolved]
  - Dizziness [Not Recovered/Not Resolved]
  - Asthenia [Not Recovered/Not Resolved]
  - Nausea [Recovering/Resolving]
  - Diplopia [Not Recovered/Not Resolved]
  - General physical health deterioration [Unknown]
  - Adverse reaction [Unknown]
  - Vision blurred [Not Recovered/Not Resolved]
